FAERS Safety Report 5052274-4 (Version None)
Quarter: 2006Q2

REPORT INFORMATION
  Report Type: 
  Country: None (occurrence: None)
  Receive Date: 20060614
  Receipt Date: 20060223
  Transmission Date: 20061013
  Serious: Yes (Other)
  Sender: FDA-Public Use
  Company Number: 437953

PATIENT
  Age: 52 Year
  Sex: Female

DRUGS (4)
  1. BONIVA [Suspect]
     Indication: DRUG USE FOR UNKNOWN INDICATION
     Dates: start: 20051215
  2. SYNTHROID [Concomitant]
  3. CALCIUM (CALCIUM) [Concomitant]
  4. VITAMINS NOS (MULTIVITAMIN NOS) [Concomitant]

REACTIONS (7)
  - BACK PAIN [None]
  - CONSTIPATION [None]
  - GASTROOESOPHAGEAL REFLUX DISEASE [None]
  - INSOMNIA [None]
  - MYALGIA [None]
  - VISUAL DISTURBANCE [None]
  - VITREOUS FLOATERS [None]
